FAERS Safety Report 8792804 (Version 3)
Quarter: 2013Q1

REPORT INFORMATION
  Report Type: Report from Study
  Country: SE (occurrence: SE)
  Receive Date: 20120918
  Receipt Date: 20130306
  Transmission Date: 20140127
  Serious: Yes (Other)
  Sender: FDA-Public Use
  Company Number: SE-GLAXOSMITHKLINE-B0831102A

PATIENT
  Sex: Female
  Weight: 96 kg

DRUGS (5)
  1. ROSIGLITAZONE [Suspect]
     Indication: TYPE 2 DIABETES MELLITUS
     Route: 048
     Dates: start: 20080825, end: 201012
  2. METFORMIN [Concomitant]
     Indication: TYPE 2 DIABETES MELLITUS
     Route: 048
     Dates: start: 20020101
  3. INSUMAN BASAL [Concomitant]
     Indication: TYPE 2 DIABETES MELLITUS
     Route: 058
     Dates: start: 201207
  4. LOSARTAN [Concomitant]
     Indication: HYPERTENSION
     Dosage: 50MG PER DAY
     Route: 048
     Dates: start: 20030724
  5. ESIDREX [Concomitant]
     Indication: HYPERTENSION
     Dosage: 25MG PER DAY
     Route: 048

REACTIONS (1)
  - Bladder cancer [Not Recovered/Not Resolved]
